FAERS Safety Report 23379161 (Version 2)
Quarter: 2024Q1

REPORT INFORMATION
  Report Type: Spontaneous
  Country: CN (occurrence: CN)
  Receive Date: 20240108
  Receipt Date: 20240131
  Transmission Date: 20240409
  Serious: Yes (Hospitalization, Other)
  Sender: FDA-Public Use
  Company Number: CN-AMGEN-CHNSP2024002169

PATIENT

DRUGS (4)
  1. REPATHA [Suspect]
     Active Substance: EVOLOCUMAB
     Indication: Arteriosclerosis
     Dosage: 140 MILLIGRAM/VIAL, Q2WK (SUBCUTANEOUS INJECTION INTO THE ABDOMEN)
     Route: 058
  2. REPATHA [Suspect]
     Active Substance: EVOLOCUMAB
     Indication: Prophylaxis
     Dosage: 140 MILLIGRAM/VIAL, Q2WK (SUBCUTANEOUS INJECTION INTO THE ABDOMEN)
     Route: 058
  3. ROSUVASTATIN [Suspect]
     Active Substance: ROSUVASTATIN
     Indication: Arteriosclerosis
     Dosage: 10 MILLIGRAM, QD (ONCE EVERY NIGHT)
     Route: 048
  4. ROSUVASTATIN [Suspect]
     Active Substance: ROSUVASTATIN
     Indication: Prophylaxis

REACTIONS (7)
  - Acute coronary syndrome [Unknown]
  - Cerebrovascular accident [Unknown]
  - Angina pectoris [Unknown]
  - Hepatic enzyme increased [Unknown]
  - Blood creatine phosphokinase increased [Unknown]
  - Myalgia [Unknown]
  - Rash [Unknown]
